FAERS Safety Report 9375446 (Version 2)
Quarter: 2013Q3

REPORT INFORMATION
  Report Type: Spontaneous
  Country: BR (occurrence: BR)
  Receive Date: 20130628
  Receipt Date: 20130829
  Transmission Date: 20140515
  Serious: Yes (Other)
  Sender: FDA-Public Use
  Company Number: BR-GLAXOSMITHKLINE-A1028938A

PATIENT
  Age: 71 Year
  Sex: Female
  Weight: 62 kg

DRUGS (4)
  1. RYTMONORM [Suspect]
     Indication: ATRIAL FIBRILLATION
     Dosage: 150MG TWICE PER DAY
     Route: 048
     Dates: start: 20130528
  2. TENSALIV [Concomitant]
  3. SIMVASTATIN [Concomitant]
     Indication: BLOOD CHOLESTEROL
  4. PROPRANOLOL [Concomitant]
     Dates: start: 2001, end: 20130528

REACTIONS (8)
  - Arrhythmia [Recovered/Resolved]
  - Palpitations [Not Recovered/Not Resolved]
  - Anxiety [Recovered/Resolved]
  - Paraesthesia [Not Recovered/Not Resolved]
  - Muscle contractions involuntary [Unknown]
  - Constipation [Recovered/Resolved]
  - Insomnia [Recovered/Resolved]
  - Malaise [Recovered/Resolved]
